APPROVED DRUG PRODUCT: METOPROLOL TARTRATE
Active Ingredient: METOPROLOL TARTRATE
Strength: 1MG/ML
Dosage Form/Route: INJECTABLE;INJECTION
Application: A090386 | Product #001
Applicant: AMERICAN REGENT INC
Approved: Sep 30, 2009 | RLD: No | RS: No | Type: DISCN